FAERS Safety Report 14214182 (Version 3)
Quarter: 2017Q4

REPORT INFORMATION
  Report Type: Report from Study
  Country: US (occurrence: US)
  Receive Date: 20171122
  Receipt Date: 20171211
  Transmission Date: 20180321
  Serious: Yes (Other)
  Sender: FDA-Public Use
  Company Number: US-GILEAD-2017-0305741

PATIENT
  Age: 76 Year
  Sex: Female
  Weight: 60.4 kg

DRUGS (4)
  1. IDELALISIB [Suspect]
     Active Substance: IDELALISIB
     Indication: BILE DUCT CANCER
     Dosage: 100 MG, BID
     Route: 048
  2. IDELALISIB [Suspect]
     Active Substance: IDELALISIB
     Dosage: 150 MG, BID
     Route: 048
     Dates: start: 2017
  3. IDELALISIB [Suspect]
     Active Substance: IDELALISIB
     Indication: CHRONIC LYMPHOCYTIC LEUKAEMIA
     Dosage: 150 MG, QD
     Route: 048
     Dates: start: 20171204, end: 20171204
  4. IDELALISIB [Suspect]
     Active Substance: IDELALISIB
     Indication: CHOLANGIOCARCINOMA
     Dosage: 150 MG, BID
     Route: 048
     Dates: start: 20171103, end: 201711

REACTIONS (13)
  - Off label use [Recovered/Resolved]
  - Product use issue [Recovered/Resolved]
  - Intentional dose omission [Recovered/Resolved]
  - Fatigue [Unknown]
  - Aphasia [Not Recovered/Not Resolved]
  - Cognitive disorder [Not Recovered/Not Resolved]
  - Abdominal cavity drainage [Recovered/Resolved]
  - Feeling abnormal [Recovering/Resolving]
  - Peripheral swelling [Recovering/Resolving]
  - Upper respiratory tract infection [Unknown]
  - Fatigue [Recovering/Resolving]
  - Sudden onset of sleep [Recovering/Resolving]
  - Intentional product use issue [Unknown]

NARRATIVE: CASE EVENT DATE: 201711
